FAERS Safety Report 11705912 (Version 5)
Quarter: 2016Q1

REPORT INFORMATION
  Report Type: Report from Study
  Country: CA (occurrence: CA)
  Receive Date: 20151106
  Receipt Date: 20160208
  Transmission Date: 20160525
  Serious: Yes (Hospitalization, Other)
  Sender: FDA-Public Use
  Company Number: CA-JNJFOC-20151102438

PATIENT
  Age: 17 Year
  Sex: Female
  Weight: 22.68 kg

DRUGS (1)
  1. REMICADE [Suspect]
     Active Substance: INFLIXIMAB
     Indication: CROHN^S DISEASE
     Dosage: 0, 2, 6 WEEKS
     Route: 042
     Dates: start: 20150827

REACTIONS (3)
  - Crohn^s disease [Unknown]
  - Surgery [Unknown]
  - Anal abscess [Unknown]

NARRATIVE: CASE EVENT DATE: 20151102
